FAERS Safety Report 6936901-X (Version None)
Quarter: 2010Q3

REPORT INFORMATION
  Report Type: 
  Country: None (occurrence: None)
  Receive Date: 20100823
  Receipt Date: 20100817
  Transmission Date: 20110219
  Serious: Yes (Hospitalization)
  Sender: FDA-Public Use
  Company Number: JP-BRISTOL-MYERS SQUIBB COMPANY-15245186

PATIENT
  Age: 31 Year

DRUGS (2)
  1. CISPLATIN [Suspect]
     Indication: CERVIX CARCINOMA RECURRENT
     Route: 042
     Dates: start: 20100721
  2. S-1 [Suspect]
     Indication: CERVIX CARCINOMA RECURRENT
     Dosage: CYCLE-1; TOTAL DAILY DOSE- 100MG
     Route: 048
     Dates: start: 20100721, end: 20100801

REACTIONS (1)
  - ILEUS [None]
